FAERS Safety Report 20032311 (Version 1)
Quarter: 2021Q4

REPORT INFORMATION
  Report Type: Spontaneous
  Country: US (occurrence: US)
  Receive Date: 20211103
  Receipt Date: 20211103
  Transmission Date: 20220303
  Serious: No
  Sender: FDA-Public Use
  Company Number: US-ALLERGAN-2119964US

PATIENT
  Age: 73 Year
  Sex: Female

DRUGS (2)
  1. VRAYLAR [Suspect]
     Active Substance: CARIPRAZINE
     Indication: Major depression
     Dosage: 1.5 MG, QOD
  2. VILAZODONE HYDROCHLORIDE [Concomitant]
     Active Substance: VILAZODONE HYDROCHLORIDE
     Indication: Major depression
     Dosage: 40 MG, QD

REACTIONS (7)
  - Hypomania [Recovering/Resolving]
  - Anger [Recovering/Resolving]
  - Off label use [Unknown]
  - Inappropriate schedule of product administration [Unknown]
  - Palpitations [Recovering/Resolving]
  - Insomnia [Recovering/Resolving]
  - Vision blurred [Recovering/Resolving]
